FAERS Safety Report 8104595-6 (Version None)
Quarter: 2012Q1

REPORT INFORMATION
  Report Type: 
  Country: None (occurrence: None)
  Receive Date: 20120201
  Receipt Date: 20120117
  Transmission Date: 20120608
  Serious: Yes (Other)
  Sender: FDA-Public Use
  Company Number: TR-WATSON-2012-01405

PATIENT
  Age: 30 Year
  Sex: Female
  Weight: 56 kg

DRUGS (1)
  1. VALPROATE SODIUM [Suspect]
     Indication: JUVENILE MYOCLONIC EPILEPSY
     Dosage: 500 MG, DAILY
     Route: 065

REACTIONS (2)
  - OEDEMA PERIPHERAL [None]
  - CELLULITIS [None]
